FAERS Safety Report 7564870-0 (Version None)
Quarter: 2011Q2

REPORT INFORMATION
  Report Type: 
  Country: None (occurrence: None)
  Receive Date: 20110622
  Receipt Date: 20110214
  Transmission Date: 20111010
  Serious: Yes (Life-Threatening, Other)
  Sender: FDA-Public Use
  Company Number: US-MYLANLABS-2011S1001471

PATIENT
  Age: 23 Year
  Sex: Female
  Weight: 91.17 kg

DRUGS (3)
  1. CLOZAPINE [Suspect]
     Dates: start: 20101215
  2. CLOZAPINE [Suspect]
     Route: 048
     Dates: end: 20110118
  3. DEPAKOTE [Concomitant]
     Dosage: 500 QAM AND 1000MG QHS

REACTIONS (2)
  - LEUKOPENIA [None]
  - GRANULOCYTOPENIA [None]
